FAERS Safety Report 6884101-4 (Version None)
Quarter: 2010Q3

REPORT INFORMATION
  Report Type: 
  Country: None (occurrence: None)
  Receive Date: 20100729
  Receipt Date: 20100723
  Transmission Date: 20110219
  Serious: Yes (Life-Threatening)
  Sender: FDA-Public Use
  Company Number: DK-B.I. PHARMACEUTICALS,INC./RIDGEFIELD-2006-SW-00240DB

PATIENT
  Sex: Female

DRUGS (5)
  1. SIFROL TAB. 0.7 MG [Suspect]
     Indication: PARKINSONISM
     Dosage: 2.1 MG
     Route: 048
     Dates: start: 20051005
  2. FOSAMAX [Concomitant]
     Route: 048
  3. SELEGILIN [Concomitant]
     Route: 048
  4. MADOPAR [Concomitant]
     Route: 048
  5. CALCICHEW D3 [Concomitant]
     Route: 048

REACTIONS (1)
  - SUDDEN ONSET OF SLEEP [None]
